FAERS Safety Report 7523951-8 (Version None)
Quarter: 2011Q2

REPORT INFORMATION
  Report Type: 
  Country: None (occurrence: None)
  Receive Date: 20110603
  Receipt Date: 20110524
  Transmission Date: 20111010
  Serious: Yes (Other)
  Sender: FDA-Public Use
  Company Number: DE-GENENTECH-319444

PATIENT
  Sex: Female
  Weight: 60.4 kg

DRUGS (4)
  1. RANITIC [Concomitant]
     Indication: PREMEDICATION
     Dosage: 50 MG, UNK
  2. PREDNISOLONE [Concomitant]
     Indication: PREMEDICATION
     Dosage: 100 MG, UNK
  3. RITUXAN [Suspect]
     Indication: B-CELL LYMPHOMA
     Dosage: 375 MG/M2, UNK
     Route: 042
  4. FENISTIL (DIMETINDENE) [Concomitant]
     Indication: PREMEDICATION
     Dosage: 4 MG, UNK

REACTIONS (3)
  - GLAUCOMA [None]
  - VISUAL IMPAIRMENT [None]
  - BLINDNESS [None]
